FAERS Safety Report 5734888-9 (Version None)
Quarter: 2008Q2

REPORT INFORMATION
  Report Type: 
  Country: None (occurrence: None)
  Receive Date: 20080512
  Receipt Date: 20080509
  Transmission Date: 20081010
  Serious: Yes (Hospitalization)
  Sender: FDA-Public Use
  Company Number: B0515725A

PATIENT
  Age: 71 Year
  Sex: Female

DRUGS (4)
  1. MALARONE [Suspect]
     Indication: MALARIA PROPHYLAXIS
     Route: 048
     Dates: start: 20080228, end: 20080228
  2. ATACAND [Concomitant]
     Dosage: 8MG PER DAY
     Route: 048
     Dates: start: 20070220
  3. CHLOORTALIDON [Concomitant]
     Dosage: 12.5MG PER DAY
     Route: 048
     Dates: start: 20040331
  4. PARIET [Concomitant]
     Route: 048
     Dates: start: 20030428

REACTIONS (2)
  - DERMATITIS BULLOUS [None]
  - OEDEMA PERIPHERAL [None]
